FAERS Safety Report 7671055-6 (Version None)
Quarter: 2011Q3

REPORT INFORMATION
  Report Type: 
  Country: None (occurrence: None)
  Receive Date: 20110805
  Receipt Date: 20110805
  Transmission Date: 20111222
  Serious: Yes (Other)
  Sender: FDA-Public Use
  Company Number: None

PATIENT
  Age: 22 Year
  Sex: Female
  Weight: 60.782 kg

DRUGS (6)
  1. MOBIC [Suspect]
     Indication: MUSCULOSKELETAL PAIN
     Dosage: 15 MG 3 DAYS
     Dates: start: 20110724
  2. MOBIC [Suspect]
     Indication: MUSCULOSKELETAL PAIN
     Dosage: 15 MG 3 DAYS
     Dates: start: 20110722
  3. MOBIC [Suspect]
     Indication: MUSCULOSKELETAL PAIN
     Dosage: 15 MG 3 DAYS
     Dates: start: 20110723
  4. SERTRALINE HYDROCHLORIDE 50 MG [Suspect]
     Indication: DEPRESSION
     Dosage: ONE PO Q HS 3 DAYS
     Route: 048
     Dates: start: 20110724
  5. SERTRALINE HYDROCHLORIDE 50 MG [Suspect]
     Indication: DEPRESSION
     Dosage: ONE PO Q HS 3 DAYS
     Route: 048
     Dates: start: 20110722
  6. SERTRALINE HYDROCHLORIDE 50 MG [Suspect]
     Indication: DEPRESSION
     Dosage: ONE PO Q HS 3 DAYS
     Route: 048
     Dates: start: 20110723

REACTIONS (2)
  - TREMOR [None]
  - CONVULSION [None]
